FAERS Safety Report 19501853 (Version 1)
Quarter: 2021Q3

REPORT INFORMATION
  Report Type: Spontaneous
  Country: US (occurrence: US)
  Receive Date: 20210707
  Receipt Date: 20210707
  Transmission Date: 20211014
  Serious: No
  Sender: FDA-Public Use
  Company Number: US-AMGEN-USASP2021099774

PATIENT
  Age: 68 Year
  Sex: Male

DRUGS (1)
  1. PROLIA [Suspect]
     Active Substance: DENOSUMAB
     Indication: OSTEOPOROSIS
     Dosage: 60 MILLIGRAM, Q6MO
     Route: 065

REACTIONS (6)
  - Pain [Unknown]
  - Chills [Unknown]
  - Groin pain [Unknown]
  - Back pain [Unknown]
  - Pyrexia [Unknown]
  - Discomfort [Unknown]

NARRATIVE: CASE EVENT DATE: 20210524
